FAERS Safety Report 8346224-2 (Version None)
Quarter: 2012Q2

REPORT INFORMATION
  Report Type: 
  Country: None (occurrence: None)
  Receive Date: 20120509
  Receipt Date: 20120430
  Transmission Date: 20120825
  Serious: Yes (Other)
  Sender: FDA-Public Use
  Company Number: US-US-EMD SERONO, INC.-7076432

PATIENT
  Sex: Male
  Weight: 68 kg

DRUGS (4)
  1. KALETRA [Concomitant]
     Indication: HIV INFECTION
     Dates: start: 20030101
  2. EGRIFTA [Suspect]
     Route: 058
     Dates: start: 20110801, end: 20120201
  3. TRUVADA [Concomitant]
     Indication: HIV INFECTION
     Dates: start: 20030101
  4. EGRIFTA [Suspect]
     Indication: LIPODYSTROPHY ACQUIRED
     Route: 058
     Dates: start: 20110428, end: 20110701

REACTIONS (3)
  - SWELLING [None]
  - DYSURIA [None]
  - ANOGENITAL DYSPLASIA [None]
